FAERS Safety Report 5651166-7 (Version None)
Quarter: 2008Q1

REPORT INFORMATION
  Report Type: 
  Country: None (occurrence: None)
  Receive Date: 20080305
  Receipt Date: 20080228
  Transmission Date: 20080703
  Serious: Yes (Hospitalization, Other)
  Sender: FDA-Public Use
  Company Number: HQWYE140910OCT03

PATIENT
  Sex: Female
  Weight: 84.1 kg

DRUGS (4)
  1. PREMPRO [Suspect]
  2. ESTRATEST [Suspect]
  3. PREMARIN [Suspect]
  4. ESTRATAB [Suspect]

REACTIONS (1)
  - BREAST CANCER METASTATIC [None]
